FAERS Safety Report 6091042-1 (Version None)
Quarter: 2009Q1

REPORT INFORMATION
  Report Type: 
  Country: None (occurrence: None)
  Receive Date: 20090219
  Receipt Date: 20090219
  Transmission Date: 20090719
  Serious: Yes (Life-Threatening, Hospitalization)
  Sender: FDA-Public Use
  Company Number: None

PATIENT
  Sex: Male
  Weight: 87.5442 kg

DRUGS (2)
  1. CLOZAPINE [Suspect]
     Indication: PARANOIA
     Dosage: TAPER TAPER PO STARTED 12.5MG 10/07/08 STOPPED (150 BID) 10/23/08
     Route: 048
     Dates: start: 20081007, end: 20081023
  2. CLOZAPINE [Suspect]
     Indication: SCHIZOPHRENIA
     Dosage: TAPER TAPER PO STARTED 12.5MG 10/07/08 STOPPED (150 BID) 10/23/08
     Route: 048
     Dates: start: 20081007, end: 20081023

REACTIONS (3)
  - MEGACOLON [None]
  - POSTOPERATIVE ILEUS [None]
  - VOLVULUS [None]
